FAERS Safety Report 21087145 (Version 1)
Quarter: 2022Q3

REPORT INFORMATION
  Report Type: Spontaneous
  Country: US (occurrence: None)
  Receive Date: 20220714
  Receipt Date: 20220714
  Transmission Date: 20221027
  Serious: Yes (Hospitalization)
  Sender: FDA-Public Use
  Company Number: None

PATIENT
  Age: 69 Year
  Sex: Male
  Weight: 111 kg

DRUGS (1)
  1. TORSEMIDE [Suspect]
     Active Substance: TORSEMIDE
     Indication: Cardiac failure congestive
     Dosage: FREQUENCY : TWICE A DAY;?
     Route: 048
     Dates: start: 20220318, end: 20220419

REACTIONS (5)
  - Vision blurred [None]
  - Dizziness [None]
  - Hypotension [None]
  - Chest pain [None]
  - Cardiac failure congestive [None]

NARRATIVE: CASE EVENT DATE: 20220411
